FAERS Safety Report 7406332-7 (Version None)
Quarter: 2011Q2

REPORT INFORMATION
  Report Type: 
  Country: None (occurrence: None)
  Receive Date: 20110411
  Receipt Date: 20110401
  Transmission Date: 20111010
  Serious: Yes (Other)
  Sender: FDA-Public Use
  Company Number: US-JNJFOC-20110403197

PATIENT
  Sex: Female
  Weight: 72.58 kg

DRUGS (2)
  1. ASPIRIN [Concomitant]
     Indication: WOUND COMPLICATION
     Route: 048
  2. LEVAQUIN [Suspect]
     Indication: WOUND INFECTION
     Dosage: FOR 7 DAYS
     Route: 048

REACTIONS (4)
  - PNEUMONIA PRIMARY ATYPICAL [None]
  - DYSPHAGIA [None]
  - GAIT DISTURBANCE [None]
  - PRODUCT QUALITY ISSUE [None]
